FAERS Safety Report 10067415 (Version 1)
Quarter: 2014Q2

REPORT INFORMATION
  Report Type: Spontaneous
  Country: US (occurrence: None)
  Receive Date: 20140408
  Receipt Date: 20140408
  Transmission Date: 20141212
  Serious: Yes (Hospitalization, Other)
  Sender: FDA-Public Use
  Company Number: None

PATIENT
  Sex: 0

DRUGS (2)
  1. AXONA [Suspect]
  2. RISPERIDONE [Suspect]

REACTIONS (2)
  - Mobility decreased [None]
  - Freezing phenomenon [None]
